FAERS Safety Report 20948115 (Version 1)
Quarter: 2022Q2

REPORT INFORMATION
  Report Type: Spontaneous
  Country: US (occurrence: US)
  Receive Date: 20220611
  Receipt Date: 20220611
  Transmission Date: 20220720
  Serious: No
  Sender: FDA-Public Use
  Company Number: US-VIIV HEALTHCARE LIMITED-US2022AMR086477

PATIENT
  Age: 19 Year
  Sex: Male

DRUGS (13)
  1. RILPIVIRINE [Suspect]
     Active Substance: RILPIVIRINE
     Indication: HIV infection
     Dosage: 2 ML, Z (MONTHLY)
     Route: 065
     Dates: start: 20211016
  2. RILPIVIRINE [Suspect]
     Active Substance: RILPIVIRINE
     Dosage: 2 ML, Z (MONTHLY)
     Route: 065
     Dates: start: 20211102
  3. RILPIVIRINE [Suspect]
     Active Substance: RILPIVIRINE
     Dosage: 2 ML, Z (MONTH)
     Route: 065
     Dates: start: 20211216
  4. RILPIVIRINE [Suspect]
     Active Substance: RILPIVIRINE
     Dosage: 3 ML, Z (EVERY 2 MONTHS)
     Route: 065
     Dates: start: 20220308
  5. RILPIVIRINE [Suspect]
     Active Substance: RILPIVIRINE
     Dosage: 3 ML, Z (EVERY 2 MONTHS)
     Route: 065
     Dates: start: 202205
  6. CABOTEGRAVIR [Suspect]
     Active Substance: CABOTEGRAVIR
     Indication: HIV infection
     Dosage: 2 ML, Z (MONTHLY)
     Route: 065
     Dates: start: 20211016
  7. CABOTEGRAVIR [Suspect]
     Active Substance: CABOTEGRAVIR
     Dosage: 2 ML, Z (MONTHLY)
     Route: 065
     Dates: start: 20211102
  8. CABOTEGRAVIR [Suspect]
     Active Substance: CABOTEGRAVIR
     Dosage: 2 ML, Z (MONTH)
     Route: 065
     Dates: start: 20211216
  9. CABOTEGRAVIR [Suspect]
     Active Substance: CABOTEGRAVIR
     Dosage: 3 ML, Z (EVERY 2 MONTHS)
     Route: 065
     Dates: start: 20220308
  10. CABOTEGRAVIR [Suspect]
     Active Substance: CABOTEGRAVIR
     Dosage: 3 ML, Z (EVERY 2 MONTHS)
     Route: 065
     Dates: start: 202205
  11. BIKTARVY [Concomitant]
     Active Substance: BICTEGRAVIR SODIUM\EMTRICITABINE\TENOFOVIR ALAFENAMIDE FUMARATE
     Indication: HIV infection
     Dosage: UNK
     Route: 048
     Dates: start: 2018
  12. VOCABRIA [CABOTEGRAVIR SODIUM] [Concomitant]
     Indication: HIV infection
     Dosage: UNK
     Route: 048
     Dates: start: 202109
  13. EDURANT [Concomitant]
     Active Substance: RILPIVIRINE HYDROCHLORIDE
     Indication: HIV infection
     Dosage: UNK
     Route: 048
     Dates: start: 202109

REACTIONS (1)
  - Blood HIV RNA increased [Unknown]

NARRATIVE: CASE EVENT DATE: 20211028
